FAERS Safety Report 9923941 (Version 3)
Quarter: 2014Q1

REPORT INFORMATION
  Report Type: Spontaneous
  Country: IT (occurrence: IT)
  Receive Date: 20140225
  Receipt Date: 20140313
  Transmission Date: 20141002
  Serious: Yes (Other)
  Sender: FDA-Public Use
  Company Number: IT-009507513-1402ITA009909

PATIENT
  Age: 37 Year
  Sex: Female

DRUGS (5)
  1. ESMERON [Suspect]
     Indication: GENERAL ANAESTHESIA
     Dosage: 40 MG TOTAL
     Route: 042
     Dates: start: 20140113, end: 20140113
  2. PROPOFOL [Suspect]
     Indication: GENERAL ANAESTHESIA
     Dosage: 150 MG TOTAL
     Route: 042
     Dates: start: 20140113, end: 20140113
  3. AUGMENTIN [Suspect]
     Indication: ANTIBIOTIC PROPHYLAXIS
     Dosage: 2000MG/200MG 1 DOSE TOTAL
     Route: 042
     Dates: start: 20140113, end: 20140113
  4. MIDAZOLAM HYDROCHLORIDE [Concomitant]
     Dosage: 5 MG
     Route: 042
  5. FENTANEST [Concomitant]
     Dosage: 0.1 MG/2 ML
     Route: 042

REACTIONS (4)
  - Supraventricular tachycardia [Recovered/Resolved]
  - Anaesthetic complication pulmonary [Recovered/Resolved]
  - Hypersensitivity [Recovered/Resolved]
  - Hypotension [Recovered/Resolved]
